FAERS Safety Report 10095138 (Version 1)
Quarter: 2014Q2

REPORT INFORMATION
  Report Type: Spontaneous
  Country: US (occurrence: US)
  Receive Date: 20140422
  Receipt Date: 20140422
  Transmission Date: 20141212
  Serious: No
  Sender: FDA-Public Use
  Company Number: US-GILEAD-2012-0057820

PATIENT
  Age: 63 Year
  Sex: Female

DRUGS (11)
  1. LETAIRIS [Suspect]
     Indication: PULMONARY HYPERTENSION
     Dosage: 5 MG, QD
     Route: 048
     Dates: start: 20120516, end: 20120629
  2. LETAIRIS [Suspect]
     Indication: BILIARY CIRRHOSIS PRIMARY
  3. REMODULIN [Concomitant]
  4. CIALIS [Concomitant]
  5. ULTRAM [Concomitant]
  6. PROTONIX [Concomitant]
  7. ACTIGALL [Concomitant]
  8. LASIX                              /00032601/ [Concomitant]
  9. ZOFRAN                             /00955302/ [Concomitant]
  10. MEVACOR [Concomitant]
  11. FOSAMAX [Concomitant]

REACTIONS (4)
  - Malaise [Unknown]
  - Pain [Unknown]
  - Quality of life decreased [Unknown]
  - Fluid retention [Unknown]
